FAERS Safety Report 9667613 (Version 4)
Quarter: 2013Q4

REPORT INFORMATION
  Report Type: Spontaneous
  Country: AU (occurrence: AU)
  Receive Date: 20131104
  Receipt Date: 20131216
  Transmission Date: 20140711
  Serious: Yes (Death, Other)
  Sender: FDA-Public Use
  Company Number: AU-AMGEN-AUSSP2013074325

PATIENT
  Age: 93 Year
  Sex: Female

DRUGS (2)
  1. PROLIA [Suspect]
     Indication: OSTEOPOROSIS POSTMENOPAUSAL
     Dosage: UNK
     Route: 065
     Dates: start: 2013
  2. VITAMIN D                          /00107901/ [Concomitant]

REACTIONS (11)
  - Hypocalcaemia [Fatal]
  - Renal impairment [Unknown]
  - Convulsion [Unknown]
  - Altered state of consciousness [Unknown]
  - Mental disorder [Unknown]
  - Confusional state [Unknown]
  - Muscular weakness [Unknown]
  - Lethargy [Unknown]
  - Creatinine renal clearance decreased [Unknown]
  - Glomerular filtration rate decreased [Unknown]
  - Respiration abnormal [Unknown]
